FAERS Safety Report 6364362-0 (Version None)
Quarter: 2009Q3

REPORT INFORMATION
  Report Type: 
  Country: None (occurrence: None)
  Receive Date: 20090919
  Receipt Date: 20090811
  Transmission Date: 20100115
  Serious: No
  Sender: FDA-Public Use
  Company Number: US-ABBOTT-09P-163-0586344-00

PATIENT

DRUGS (5)
  1. HUMIRA [Suspect]
     Indication: PSORIASIS
     Route: 058
     Dates: start: 20080701, end: 20081201
  2. HUMIRA [Suspect]
     Route: 058
     Dates: start: 20081201
  3. METHOTREXATE [Concomitant]
     Indication: PSORIASIS
     Dates: start: 20081201, end: 20090601
  4. PROZAC [Concomitant]
     Indication: DEPRESSION
  5. PROZAC [Concomitant]

REACTIONS (4)
  - DEPRESSED MOOD [None]
  - FATIGUE [None]
  - INFECTION [None]
  - PSORIASIS [None]
